FAERS Safety Report 25596412 (Version 3)
Quarter: 2025Q3

REPORT INFORMATION
  Report Type: Spontaneous
  Country: US (occurrence: US)
  Receive Date: 20250723
  Receipt Date: 20250829
  Transmission Date: 20251021
  Serious: No
  Sender: PFIZER
  Company Number: US-PFIZER INC-202500146743

PATIENT
  Age: 55 Year
  Sex: Female
  Weight: 55.8 kg

DRUGS (1)
  1. TIVDAK [Suspect]
     Active Substance: TISOTUMAB VEDOTIN-TFTV
     Dosage: 111.6 MG, EVERY 3 WEEKS
     Route: 042
     Dates: start: 20250725

REACTIONS (2)
  - Weight decreased [Unknown]
  - Off label use [Unknown]
